FAERS Safety Report 20842025 (Version 1)
Quarter: 2022Q2

REPORT INFORMATION
  Report Type: Spontaneous
  Country: US (occurrence: US)
  Receive Date: 20220518
  Receipt Date: 20220518
  Transmission Date: 20220720
  Serious: No
  Sender: FDA-Public Use
  Company Number: US-ORGANON-O2205USA001174

PATIENT
  Sex: Female

DRUGS (1)
  1. NEXPLANON [Suspect]
     Active Substance: ETONOGESTREL
     Indication: Contraception
     Dosage: 2 RODS IN LEFT RM
     Route: 059
     Dates: start: 20181111, end: 20220505

REACTIONS (8)
  - Feeling abnormal [Recovered/Resolved]
  - Hormone level abnormal [Recovered/Resolved]
  - Depression [Recovered/Resolved]
  - Arthralgia [Recovered/Resolved]
  - Device breakage [Recovered/Resolved]
  - Overdose [Unknown]
  - Wrong technique in device usage process [Unknown]
  - Incorrect product administration duration [Unknown]

NARRATIVE: CASE EVENT DATE: 20181111
